FAERS Safety Report 21442522 (Version 1)
Quarter: 2022Q4

REPORT INFORMATION
  Report Type: Spontaneous
  Country: US (occurrence: None)
  Receive Date: 20221010
  Receipt Date: 20221010
  Transmission Date: 20230112
  Serious: Yes (Hospitalization)
  Sender: FDA-Public Use
  Company Number: None

PATIENT
  Age: 67 Year
  Sex: Male
  Weight: 89.77 kg

DRUGS (19)
  1. ERLEADA [Suspect]
     Active Substance: APALUTAMIDE
     Indication: Prostate cancer
     Dosage: 240MG DAILY ORAL?
     Route: 048
  2. ADVAIR HFA INHALATION [Concomitant]
  3. ATORVASTATIN CALCIUM [Concomitant]
     Active Substance: ATORVASTATIN CALCIUM
  4. CHLORHEXIDINE [Concomitant]
  5. GLUCONATE [Concomitant]
  6. GLIPIZIDE XL [Concomitant]
  7. LEVEMIR [Concomitant]
  8. LOSARTAN [Concomitant]
  9. POTASSIUM [Concomitant]
  10. MULTIVITAMINS [Concomitant]
  11. PREVAIL AIR BRIEFS [Concomitant]
  12. OMEPRAZOLE [Concomitant]
  13. ARTIFICAL TEARS [Concomitant]
     Active Substance: GLYCERIN\HYPROMELLOSE 2910 (15 MPA.S)\POLYETHYLENE GLYCOL 400\PROPYLENE GLYCOL
  14. TAMSULOSIN [Concomitant]
  15. SENNA [Concomitant]
  16. TRIPLE OMEGA [Concomitant]
  17. ULTRA LUBRICANT EYE DROPS [Concomitant]
     Active Substance: POLYETHYLENE GLYCOL 400\PROPYLENE GLYCOL
  18. ULTICARE ALCOHOL SWABS [Concomitant]
  19. WALGREENS GLUCOSE [Concomitant]

REACTIONS (1)
  - COVID-19 [None]
